FAERS Safety Report 8555241-9 (Version None)
Quarter: 2012Q3

REPORT INFORMATION
  Report Type: 
  Country: None (occurrence: None)
  Receive Date: 20120731
  Receipt Date: 20111219
  Transmission Date: 20120928
  Serious: No
  Sender: FDA-Public Use
  Company Number: US-ASTRAZENECA-2011SE51547

PATIENT
  Age: 55 Year
  Sex: Female
  Weight: 72.6 kg

DRUGS (14)
  1. SEROQUEL [Suspect]
     Route: 048
  2. SEROQUEL [Suspect]
     Route: 048
  3. ZOLOFT [Concomitant]
     Indication: ANXIETY DISORDER
  4. ATIVAN [Concomitant]
     Indication: ANXIETY
  5. SEROQUEL [Suspect]
     Route: 048
  6. SEROQUEL [Suspect]
     Dosage: TWO TIMES DAILY
     Route: 048
     Dates: start: 20050101, end: 20110101
  7. SEROQUEL [Suspect]
     Dosage: TWO TIMES DAILY
     Route: 048
     Dates: start: 20050101, end: 20110101
  8. ZOLOFT [Concomitant]
     Indication: DEPRESSION
  9. ASPIRIN [Concomitant]
     Indication: BLOOD TRIGLYCERIDES ABNORMAL
  10. SEROQUEL [Suspect]
     Indication: DEPRESSION
     Route: 048
  11. SEROQUEL [Suspect]
     Indication: ANXIETY DISORDER
     Route: 048
  12. LOPID [Concomitant]
     Indication: HYPERCHOLESTEROLAEMIA
  13. MULTI-VITAMINS [Concomitant]
  14. SEROQUEL [Suspect]
     Route: 048

REACTIONS (14)
  - BACK PAIN [None]
  - NERVOUSNESS [None]
  - DRUG DOSE OMISSION [None]
  - OFF LABEL USE [None]
  - HEADACHE [None]
  - PRURITUS [None]
  - BLOOD CHOLESTEROL INCREASED [None]
  - INCORRECT DOSE ADMINISTERED [None]
  - DEPRESSION [None]
  - ANXIETY [None]
  - VISUAL IMPAIRMENT [None]
  - ARTHRALGIA [None]
  - AGGRESSION [None]
  - VISION BLURRED [None]
